FAERS Safety Report 6258057-1 (Version None)
Quarter: 2009Q3

REPORT INFORMATION
  Report Type: 
  Country: None (occurrence: None)
  Receive Date: 20090707
  Receipt Date: 20090629
  Transmission Date: 20100115
  Serious: Yes (Disabling)
  Sender: FDA-Public Use
  Company Number: NL-WYE-G03693909

PATIENT
  Age: 17 Year
  Sex: Male
  Weight: 65 kg

DRUGS (3)
  1. EFFEXOR XR [Suspect]
     Indication: ANXIETY DISORDER
     Route: 048
     Dates: start: 20090323, end: 20090518
  2. EFFEXOR XR [Suspect]
     Indication: PANIC DISORDER
  3. EFFEXOR XR [Suspect]
     Indication: ASTHENIA

REACTIONS (2)
  - DISSOCIATIVE DISORDER [None]
  - FACTITIOUS DISORDER [None]
